FAERS Safety Report 11916285 (Version 2)
Quarter: 2016Q1

REPORT INFORMATION
  Report Type: Report from Study
  Country: TW (occurrence: TW)
  Receive Date: 20160114
  Receipt Date: 20160202
  Transmission Date: 20160526
  Serious: Yes (Hospitalization, Other)
  Sender: FDA-Public Use
  Company Number: TW-JNJFOC-20160107241

PATIENT
  Sex: Male
  Weight: 91 kg

DRUGS (1)
  1. STELARA [Suspect]
     Active Substance: USTEKINUMAB
     Indication: PSORIASIS
     Route: 058
     Dates: start: 20150626, end: 20151017

REACTIONS (3)
  - Pain [Unknown]
  - Gait disturbance [Unknown]
  - Cerebral palsy [Not Recovered/Not Resolved]
